FAERS Safety Report 19928077 (Version 1)
Quarter: 2021Q4

REPORT INFORMATION
  Report Type: Spontaneous
  Country: US (occurrence: US)
  Receive Date: 20211006
  Receipt Date: 20211006
  Transmission Date: 20220303
  Serious: Yes (Disabling)
  Sender: FDA-Public Use
  Company Number: None

PATIENT
  Age: 62 Year
  Sex: Female
  Weight: 83.25 kg

DRUGS (3)
  1. CLONAZEPAM [Suspect]
     Active Substance: CLONAZEPAM
     Indication: Anxiety
     Dosage: ?          QUANTITY:1 TABLET(S);
     Route: 048
  2. CLONAZEPAM [Concomitant]
     Active Substance: CLONAZEPAM
  3. PROPRANOLOL [Concomitant]
     Active Substance: PROPRANOLOL HYDROCHLORIDE

REACTIONS (2)
  - Drug dependence [None]
  - Drug withdrawal syndrome [None]

NARRATIVE: CASE EVENT DATE: 20211001
